FAERS Safety Report 10745693 (Version 1)
Quarter: 2015Q1

REPORT INFORMATION
  Report Type: Spontaneous
  Country: US (occurrence: US)
  Receive Date: 20150128
  Receipt Date: 20150128
  Transmission Date: 20150721
  Serious: Yes (Other)
  Sender: FDA-Public Use
  Company Number: US-TEVA-536451USA

PATIENT
  Age: 5 Year
  Sex: Male

DRUGS (13)
  1. NEURONTIN [Concomitant]
     Active Substance: GABAPENTIN
     Dosage: 12 ML DAILY; 250 MG/5 ML SOLUTION
  2. FOLINIC ACID [Suspect]
     Active Substance: LEUCOVORIN
     Dosage: 1 TABLET TID
     Route: 065
  3. CLONIDINE. [Concomitant]
     Active Substance: CLONIDINE
     Dosage: .1 MILLIGRAM DAILY;
  4. CARAFATE [Concomitant]
     Active Substance: SUCRALFATE
     Dosage: 1 GM/10 ML; PRN
  5. CLONAZEPAM. [Suspect]
     Active Substance: CLONAZEPAM
     Dosage: 3 ML DAILY; 0.1 MG/ML SOLUTION
     Route: 065
  6. ONDANSETRON [Suspect]
     Active Substance: ONDANSETRON
     Dosage: 4 MG/5 ML SOLUTION PRN
     Route: 065
  7. ARTANE [Concomitant]
     Active Substance: TRIHEXYPHENIDYL HYDROCHLORIDE
     Dosage: 22.5 ML DAILY; 2 MG/ML ELX
  8. ONFI [Concomitant]
     Active Substance: CLOBAZAM
     Dosage: 3 ML DAILY; 2 MG/ML
  9. TRAZODONE [Suspect]
     Active Substance: TRAZODONE HYDROCHLORIDE
     Dosage: 50 MILLIGRAM DAILY;
  10. ROBINUL [Concomitant]
     Active Substance: GLYCOPYRROLATE
     Dosage: 6 ML DAILY; 1 MG/5 ML SOLUTION
  11. ERYPED [Concomitant]
     Active Substance: ERYTHROMYCIN ETHYLSUCCINATE
     Dosage: 3 ML DAILY; 400 MG/5 ML; 1.0 OM
  12. OMEPRAZOLE. [Concomitant]
     Active Substance: OMEPRAZOLE
     Dosage: 2 MG/ML; 7 MLS OM
  13. BACLOFEN. [Suspect]
     Active Substance: BACLOFEN
     Dosage: 4.5 DOSAGE FORMS DAILY;
     Route: 065

REACTIONS (4)
  - Leukodystrophy [Unknown]
  - Seizure [Unknown]
  - Deafness [Unknown]
  - Blindness cortical [Unknown]
